FAERS Safety Report 5691384-5 (Version None)
Quarter: 2008Q2

REPORT INFORMATION
  Report Type: 
  Country: None (occurrence: None)
  Receive Date: 20080401
  Receipt Date: 20080401
  Transmission Date: 20081010
  Serious: Yes (Life-Threatening, Hospitalization)
  Sender: FDA-Public Use
  Company Number: None

PATIENT
  Age: 89 Year
  Sex: Male

DRUGS (2)
  1. WARFARIN SODIUM [Suspect]
     Indication: ATRIAL FIBRILLATION
     Dosage: 1.8MG EVERY DAY PO
     Route: 048
     Dates: start: 20051209
  2. MOXIFLOXACIN HCL [Suspect]
     Indication: UPPER RESPIRATORY TRACT INFECTION
     Dosage: 400MG EVERY DAY PO
     Route: 048
     Dates: end: 20070412

REACTIONS (2)
  - HAEMORRHAGE [None]
  - URINE ANALYSIS ABNORMAL [None]
